FAERS Safety Report 24891145 (Version 1)
Quarter: 2025Q1

REPORT INFORMATION
  Report Type: Spontaneous
  Country: US (occurrence: US)
  Receive Date: 20250127
  Receipt Date: 20250127
  Transmission Date: 20250409
  Serious: No
  Sender: SANOFI AVENTIS
  Company Number: US-SANOFI-02379637

PATIENT
  Sex: Female

DRUGS (2)
  1. PRIFTIN [Suspect]
     Active Substance: RIFAPENTINE
     Indication: Tuberculosis
  2. ISONIAZID [Concomitant]
     Active Substance: ISONIAZID

REACTIONS (1)
  - Vertigo [Unknown]
